FAERS Safety Report 7230318-9 (Version None)
Quarter: 2011Q1

REPORT INFORMATION
  Report Type: 
  Country: None (occurrence: None)
  Receive Date: 20110118
  Receipt Date: 20110112
  Transmission Date: 20110831
  Serious: No
  Sender: FDA-Public Use
  Company Number: US-PFIZER INC-2011008558

PATIENT
  Sex: Female
  Weight: 68.027 kg

DRUGS (4)
  1. CYTOMEL [Concomitant]
     Indication: HYPERTHYROIDISM
     Dosage: UNK
  2. ESTRING [Suspect]
     Indication: VULVOVAGINAL DRYNESS
     Dosage: 2 MG, UNK
     Route: 067
     Dates: start: 20101222, end: 20110105
  3. WARFARIN [Concomitant]
     Dosage: UNK
  4. LEVOXYL [Concomitant]
     Indication: HYPERTHYROIDISM
     Dosage: UNK

REACTIONS (1)
  - PAIN IN EXTREMITY [None]
